FAERS Safety Report 4997760-8 (Version None)
Quarter: 2006Q2

REPORT INFORMATION
  Report Type: 
  Country: None (occurrence: None)
  Receive Date: 20060505
  Receipt Date: 20060425
  Transmission Date: 20061013
  Serious: Yes (Other)
  Sender: FDA-Public Use
  Company Number: 2006055164

PATIENT
  Age: 17 Year
  Sex: Male
  Weight: 136.0791 kg

DRUGS (1)
  1. NATURAL CITRUS LISTERINE (MENTHOL, METHYL SALICYLATE, EUCALYPTOL, THYM [Suspect]
     Dosage: ONE (1 LITER) BOTTLE ONCE, ORAL
     Route: 048
     Dates: start: 20060425, end: 20060425

REACTIONS (5)
  - INCORRECT DOSE ADMINISTERED [None]
  - INCORRECT ROUTE OF DRUG ADMINISTRATION [None]
  - POOR QUALITY DRUG ADMINISTERED [None]
  - RASH [None]
  - SWELLING FACE [None]
